FAERS Safety Report 5474653-3 (Version None)
Quarter: 2007Q4

REPORT INFORMATION
  Report Type: 
  Country: None (occurrence: None)
  Receive Date: 20071002
  Receipt Date: 20070918
  Transmission Date: 20080405
  Serious: Yes (Hospitalization, Other)
  Sender: FDA-Public Use
  Company Number: NO-ELI_LILLY_AND_COMPANY-NO200701003187

PATIENT
  Age: 16 Year
  Sex: Female
  Weight: 53 kg

DRUGS (3)
  1. STRATTERA [Suspect]
     Dosage: 40 MG, UNK
  2. CONCERTA [Concomitant]
     Dosage: 54 MG, UNK
  3. RITALIN [Concomitant]
     Dosage: 10 MG, UNK

REACTIONS (10)
  - CONSCIOUSNESS FLUCTUATING [None]
  - DIZZINESS [None]
  - DRUG TOXICITY [None]
  - DYSKINESIA [None]
  - HYPERTENSION [None]
  - MULTIPLE DRUG OVERDOSE [None]
  - OVERDOSE [None]
  - SUICIDE ATTEMPT [None]
  - TACHYCARDIA [None]
  - TREMOR [None]
